FAERS Safety Report 4680111-6 (Version None)
Quarter: 2005Q2

REPORT INFORMATION
  Report Type: 
  Country: None (occurrence: None)
  Receive Date: 20050531
  Receipt Date: 20050517
  Transmission Date: 20051028
  Serious: Yes (Other)
  Sender: FDA-Public Use
  Company Number: 2005077556

PATIENT
  Age: 42 Year
  Sex: Female

DRUGS (2)
  1. LITHIUM CARBONATE [Suspect]
     Indication: MANIA
     Dosage: 800 MG (1 IN 1 D), ORAL
     Route: 048
  2. RISPERDAL [Suspect]
     Indication: MANIA
     Dosage: 5 MG, ORAL
     Route: 048

REACTIONS (4)
  - AKATHISIA [None]
  - DRUG INTERACTION POTENTIATION [None]
  - DYSKINESIA [None]
  - EXTRAPYRAMIDAL DISORDER [None]
